FAERS Safety Report 19291618 (Version 2)
Quarter: 2021Q3

REPORT INFORMATION
  Report Type: Report from Study
  Country: FR (occurrence: FR)
  Receive Date: 20210523
  Receipt Date: 20210723
  Transmission Date: 20211014
  Serious: Yes (Hospitalization)
  Sender: FDA-Public Use
  Company Number: FR-BIOGEN-2021BI01011871

PATIENT
  Age: 23 Year
  Sex: Female

DRUGS (1)
  1. TYSABRI [Suspect]
     Active Substance: NATALIZUMAB
     Indication: MULTIPLE SCLEROSIS
     Route: 065
     Dates: start: 201908

REACTIONS (2)
  - Sensory loss [Recovered/Resolved]
  - Motor dysfunction [Recovered/Resolved]

NARRATIVE: CASE EVENT DATE: 202011
